FAERS Safety Report 8018057-8 (Version None)
Quarter: 2012Q1

REPORT INFORMATION
  Report Type: 
  Country: None (occurrence: None)
  Receive Date: 20120103
  Receipt Date: 20111227
  Transmission Date: 20120608
  Serious: Yes (Hospitalization)
  Sender: FDA-Public Use
  Company Number: JP-JNJFOC-20111212211

PATIENT
  Sex: Male

DRUGS (11)
  1. SENNOSIDE A+B [Concomitant]
     Indication: CONSTIPATION
     Route: 048
     Dates: start: 20110722, end: 20110724
  2. LEVOFLOXACIN [Suspect]
     Route: 048
     Dates: start: 20110816, end: 20110817
  3. LEVOFLOXACIN [Suspect]
     Indication: UPPER RESPIRATORY TRACT INFLAMMATION
     Route: 065
     Dates: start: 20110308, end: 20110311
  4. MUCOSTA [Concomitant]
     Indication: DRUG THERAPY
     Route: 048
     Dates: start: 20110816, end: 20110817
  5. LOXONIN [Concomitant]
     Indication: DRUG THERAPY
     Route: 048
     Dates: start: 20110816, end: 20110818
  6. LEVOFLOXACIN [Suspect]
     Route: 048
     Dates: start: 20110730
  7. LEVOFLOXACIN [Suspect]
     Route: 048
     Dates: start: 20110730
  8. HARNAL D [Concomitant]
     Indication: BENIGN PROSTATIC HYPERPLASIA
     Route: 048
     Dates: start: 20110720
  9. CERNILTON [Concomitant]
     Indication: BENIGN PROSTATIC HYPERPLASIA
     Route: 048
     Dates: start: 20110720
  10. LEVOFLOXACIN [Suspect]
     Indication: PROSTATITIS
     Route: 048
     Dates: start: 20110816, end: 20110817
  11. CEFTRIAXONE [Concomitant]
     Indication: PROSTATITIS
     Route: 041
     Dates: start: 20110806, end: 20110815

REACTIONS (2)
  - PNEUMONIA [None]
  - DRUG INEFFECTIVE [None]
